FAERS Safety Report 16966266 (Version 1)
Quarter: 2019Q4

REPORT INFORMATION
  Report Type: Spontaneous
  Country: US (occurrence: US)
  Receive Date: 20190910
  Receipt Date: 20190910
  Transmission Date: 20200122
  Serious: No
  Sender: FDA-Public Use
  Company Number: None

PATIENT
  Age: 81 Year
  Sex: Female

DRUGS (4)
  1. BRIMONIDINE OPTH FROM 07/01/2019 TO 09/10/2019 [Concomitant]
  2. LUMIGAN FROM 07/01/2019 TO 09/10 2019 [Concomitant]
  3. DORZOLAMIDE OPTHALMIC FROM 07/01/2019 TO 09/10/2019 [Concomitant]
  4. REPATHA [Suspect]
     Active Substance: EVOLOCUMAB
     Dosage: ?          OTHER FREQUENCY:UNKNOWN;?
     Route: 058

REACTIONS (1)
  - Rash [None]

NARRATIVE: CASE EVENT DATE: 20190910
